FAERS Safety Report 9751667 (Version 2)
Quarter: 2013Q4

REPORT INFORMATION
  Report Type: Spontaneous
  Country: US (occurrence: US)
  Receive Date: 20131213
  Receipt Date: 20131213
  Transmission Date: 20140711
  Serious: Yes (Congenital Anomaly, Other)
  Sender: FDA-Public Use
  Company Number: US-ACCORD-020778

PATIENT
  Sex: Male
  Weight: 1.87 kg

DRUGS (2)
  1. PACLITAXEL [Suspect]
     Indication: SEROUS CYSTADENOCARCINOMA OVARY
     Dosage: GIVEN DAYS 1, 8, AND 15 ON A 28-DAY CYCLE.
     Route: 064
  2. CARBOPLATIN [Suspect]
     Indication: SEROUS CYSTADENOCARCINOMA OVARY
     Dosage: AUC-6, GIVEN DAY 1 OF 28 DAY CYCLE
     Route: 064

REACTIONS (3)
  - Foetal exposure during pregnancy [Unknown]
  - Talipes [Recovering/Resolving]
  - Low birth weight baby [Recovered/Resolved]
